FAERS Safety Report 25527344 (Version 1)
Quarter: 2025Q3

REPORT INFORMATION
  Report Type: Spontaneous
  Country: US (occurrence: US)
  Receive Date: 20250708
  Receipt Date: 20250708
  Transmission Date: 20251021
  Serious: No
  Sender: GLAXOSMITHKLINE
  Company Number: US-GSK-US2025AMR074506

PATIENT
  Sex: Female

DRUGS (1)
  1. ALBUTEROL SULFATE [Suspect]
     Active Substance: ALBUTEROL SULFATE
     Indication: Asthma exercise induced

REACTIONS (4)
  - Wrong technique in device usage process [Unknown]
  - Product dose omission issue [Unknown]
  - Wrong technique in product usage process [Unknown]
  - Product storage error [Unknown]
